FAERS Safety Report 11654293 (Version 2)
Quarter: 2016Q1

REPORT INFORMATION
  Report Type: Report from Study
  Country: US (occurrence: US)
  Receive Date: 20151023
  Receipt Date: 20160108
  Transmission Date: 20160525
  Serious: No
  Sender: FDA-Public Use
  Company Number: PHEH2015US020855

PATIENT
  Age: 88 Year
  Sex: Male
  Weight: 68 kg

DRUGS (1)
  1. ENTRESTO [Suspect]
     Active Substance: SACUBITRIL\VALSARTAN
     Indication: CARDIAC FAILURE
     Dosage: 50 MG, BID
     Route: 048
     Dates: start: 20150730, end: 20150906

REACTIONS (2)
  - Sciatica [Unknown]
  - Tremor [Unknown]

NARRATIVE: CASE EVENT DATE: 20150906
